FAERS Safety Report 11374433 (Version 12)
Quarter: 2017Q2

REPORT INFORMATION
  Report Type: Report from Study
  Country: JP (occurrence: JP)
  Receive Date: 20150813
  Receipt Date: 20170527
  Transmission Date: 20170829
  Serious: Yes (Hospitalization, Other)
  Sender: FDA-Public Use
  Company Number: JP-AMGEN-JPNCT2015071366

PATIENT
  Age: 76 Year
  Sex: Male
  Weight: 60.5 kg

DRUGS (23)
  1. OXALIPLATIN. [Suspect]
     Active Substance: OXALIPLATIN
     Dosage: 65 MG/M2, Q2WEEKS
     Route: 041
     Dates: start: 20150622, end: 20150622
  2. 5-FU [Suspect]
     Active Substance: FLUOROURACIL
     Dosage: 348.4 MG, Q2WK
     Route: 040
     Dates: start: 20150406, end: 20150525
  3. PANITUMUMAB [Suspect]
     Active Substance: PANITUMUMAB
     Dosage: 307.2 MG, Q2WEEKS
     Route: 041
     Dates: start: 20150727, end: 20150727
  4. 5-FU [Suspect]
     Active Substance: FLUOROURACIL
     Indication: COLON CANCER
     Dosage: 400 MG/M2, Q2WK
     Route: 040
     Dates: start: 20150317, end: 20150317
  5. 5-FU [Suspect]
     Active Substance: FLUOROURACIL
     Dosage: UNK
     Route: 042
     Dates: start: 20150903
  6. ISOVORIN [Concomitant]
     Active Substance: LEUCOVORIN CALCIUM
     Indication: COLON CANCER
     Dosage: 348.4 MG, Q2WEEKS
     Route: 041
     Dates: start: 20150622, end: 20150622
  7. PANITUMUMAB [Suspect]
     Active Substance: PANITUMUMAB
     Indication: COLON CANCER
     Dosage: 6 MG/KG, Q2WEEKS
     Route: 041
     Dates: start: 20150317, end: 20150317
  8. 5-FU [Suspect]
     Active Substance: FLUOROURACIL
     Indication: COLON CANCER
     Dosage: 3470 MG, Q2WEEKS
     Route: 041
     Dates: start: 20150317, end: 20150317
  9. DEXART [Concomitant]
     Active Substance: DEXAMETHASONE SODIUM PHOSPHATE
     Indication: PROPHYLAXIS OF NAUSEA AND VOMITING
     Dosage: 4.4 MG, UNK
     Route: 042
     Dates: start: 20150317, end: 20150727
  10. 5-FU [Suspect]
     Active Substance: FLUOROURACIL
     Dosage: 348.4 MG, Q2WK
     Route: 040
     Dates: start: 20150622, end: 20150622
  11. PROEMEND [Concomitant]
     Active Substance: FOSAPREPITANT
     Indication: PROPHYLAXIS OF NAUSEA AND VOMITING
     Dosage: 150 MG, UNK
     Route: 041
     Dates: start: 20150317, end: 20150727
  12. PANITUMUMAB [Suspect]
     Active Substance: PANITUMUMAB
     Dosage: 307.2 MG, Q2WEEKS
     Route: 041
     Dates: start: 20150511, end: 20150525
  13. 5-FU [Suspect]
     Active Substance: FLUOROURACIL
     Dosage: 2000 MG/M2, Q2WK
     Route: 041
     Dates: start: 20150622, end: 20150622
  14. ISOVORIN [Concomitant]
     Active Substance: LEUCOVORIN CALCIUM
     Indication: COLON CANCER
     Dosage: 348.4 MG, Q2WEEKS
     Route: 041
     Dates: start: 20150317, end: 20150525
  15. ALOXI [Concomitant]
     Active Substance: PALONOSETRON HYDROCHLORIDE
     Indication: PROPHYLAXIS OF NAUSEA AND VOMITING
     Dosage: 0.75 MG, UNK
     Route: 042
     Dates: start: 20150317, end: 20150727
  16. PANITUMUMAB [Suspect]
     Active Substance: PANITUMUMAB
     Dosage: 307.2 MG, Q2WEEKS
     Route: 041
     Dates: start: 20150622, end: 20150622
  17. OXALIPLATIN. [Suspect]
     Active Substance: OXALIPLATIN
     Dosage: 65 MG/M2, Q2WEEKS
     Route: 041
     Dates: start: 20150406, end: 20150525
  18. 5-FU [Suspect]
     Active Substance: FLUOROURACIL
     Dosage: 2000 MG/M2, Q2WK
     Route: 041
     Dates: start: 20150406, end: 20150525
  19. 5-FU [Suspect]
     Active Substance: FLUOROURACIL
     Dosage: 2760 MG, Q2WK
     Route: 041
     Dates: start: 20150727, end: 20150729
  20. ISOVORIN [Concomitant]
     Active Substance: LEUCOVORIN CALCIUM
     Dosage: 348.4 MG, Q2WEEKS
     Route: 041
     Dates: start: 20150727, end: 20150727
  21. ISOVORIN [Concomitant]
     Active Substance: LEUCOVORIN CALCIUM
     Dosage: UNK
     Route: 041
     Dates: start: 20150903
  22. OXALIPLATIN. [Suspect]
     Active Substance: OXALIPLATIN
     Indication: COLON CANCER
     Dosage: 123.5 MG, Q2WEEKS
     Route: 041
     Dates: start: 20150317, end: 20150317
  23. OXALIPLATIN. [Suspect]
     Active Substance: OXALIPLATIN
     Dosage: 85 MG, Q2WEEKS
     Route: 041
     Dates: start: 20150727, end: 20150727

REACTIONS (8)
  - Leukopenia [Recovered/Resolved]
  - White blood cell count decreased [Recovered/Resolved]
  - Rash [Not Recovered/Not Resolved]
  - Febrile neutropenia [Recovered/Resolved]
  - Malaise [Recovering/Resolving]
  - Neutropenia [Recovered/Resolved]
  - Neuropathy peripheral [Not Recovered/Not Resolved]
  - Biliary tract infection [Recovering/Resolving]

NARRATIVE: CASE EVENT DATE: 20150331
